FAERS Safety Report 10025299 (Version 2)
Quarter: 2014Q2

REPORT INFORMATION
  Report Type: Spontaneous
  Country: TR (occurrence: TR)
  Receive Date: 20140320
  Receipt Date: 20140414
  Transmission Date: 20141212
  Serious: Yes (Hospitalization)
  Sender: FDA-Public Use
  Company Number: TR-SA-2014SA030091

PATIENT
  Age: 45 Year
  Sex: Female
  Weight: 76 kg

DRUGS (2)
  1. ELOXATIN [Suspect]
     Indication: PRODUCT USED FOR UNKNOWN INDICATION
     Dosage: ROUTE:PORT?TWO 100 MG FLACON + ONE 50 MG FLACON OF ELOXATIN (OXALIPLATIN) WITH 500 CC 5% DEXTROSE
     Route: 065
     Dates: end: 20140227
  2. FLUOROURACIL [Concomitant]

REACTIONS (12)
  - Flushing [Recovered/Resolved]
  - Discomfort [Recovered/Resolved]
  - Tachycardia [Recovered/Resolved]
  - Pollakiuria [Recovered/Resolved]
  - Oxygen saturation decreased [Recovered/Resolved]
  - Hypoaesthesia [Recovered/Resolved]
  - Aphasia [Recovered/Resolved]
  - Body temperature increased [Recovered/Resolved]
  - Hypertension [Recovered/Resolved]
  - Erythema [Recovered/Resolved]
  - Heart rate increased [Recovered/Resolved]
  - Hypersensitivity [Recovered/Resolved]
